FAERS Safety Report 8925829 (Version 1)
Quarter: 2012Q4

REPORT INFORMATION
  Report Type: 
  Country: US (occurrence: US)
  Receive Date: 20121126
  Receipt Date: 20121126
  Transmission Date: 20130627
  Serious: Yes (Other)
  Sender: FDA-Public Use
  Company Number: PHEH2012US023034

PATIENT
  Sex: Female

DRUGS (1)
  1. GLEEVEC [Suspect]
     Indication: ACUTE LYMPHOCYTIC LEUKAEMIA
     Dosage: 300 mg, UNK
     Route: 048
     Dates: start: 20120412

REACTIONS (3)
  - Breast mass [Unknown]
  - Chromaturia [Unknown]
  - Diarrhoea [Unknown]
